FAERS Safety Report 7288110-5 (Version None)
Quarter: 2011Q1

REPORT INFORMATION
  Report Type: 
  Country: None (occurrence: None)
  Receive Date: 20110211
  Receipt Date: 20101026
  Transmission Date: 20110831
  Serious: No
  Sender: FDA-Public Use
  Company Number: US-BAYER-201023108BCC

PATIENT
  Sex: Female
  Weight: 47.273 kg

DRUGS (1)
  1. ALEVE [Suspect]
     Indication: HEADACHE
     Dosage: 2 DF, UNK

REACTIONS (1)
  - ABDOMINAL PAIN UPPER [None]
